FAERS Safety Report 4362350-7 (Version None)
Quarter: 2004Q2

REPORT INFORMATION
  Report Type: 
  Country: None (occurrence: None)
  Receive Date: 20040518
  Receipt Date: 20040323
  Transmission Date: 20050107
  Serious: Yes (Other)
  Sender: FDA-Public Use
  Company Number: 9039997-2004-00006

PATIENT
  Sex: Female

DRUGS (1)
  1. LEVULAN KERASTICK FOR TOPICAL SOLUTION, 20% [Suspect]
     Indication: ACTINIC KERATOSIS
     Dosage: 20%, ONCE, TOPICAL
     Route: 061
     Dates: start: 20040114, end: 20040115

REACTIONS (6)
  - ANXIETY [None]
  - BLOODY DISCHARGE [None]
  - ERYTHEMA [None]
  - OEDEMA [None]
  - PAIN [None]
  - PRURITUS [None]
